FAERS Safety Report 11863850 (Version 1)
Quarter: 2015Q4

REPORT INFORMATION
  Report Type: Report from Study
  Country: US (occurrence: US)
  Receive Date: 20151223
  Receipt Date: 20151223
  Transmission Date: 20160305
  Serious: Yes (Hospitalization)
  Sender: FDA-Public Use
  Company Number: US-EISAI MEDICAL RESEARCH-EC-2015-013047

PATIENT
  Age: 39 Year
  Sex: Female
  Weight: 91.72 kg

DRUGS (1)
  1. LORCASERIN [Suspect]
     Active Substance: LORCASERIN HYDROCHLORIDE
     Indication: OBESITY
     Route: 048
     Dates: start: 20151214, end: 20151221

REACTIONS (1)
  - Salivary gland calculus [Recovering/Resolving]

NARRATIVE: CASE EVENT DATE: 20151220
